FAERS Safety Report 6353493-7 (Version None)
Quarter: 2009Q3

REPORT INFORMATION
  Report Type: 
  Country: None (occurrence: None)
  Receive Date: 20090912
  Receipt Date: 20090622
  Transmission Date: 20100115
  Serious: No
  Sender: FDA-Public Use
  Company Number: US-ABBOTT-08P-163-0470362-00

PATIENT
  Sex: Female
  Weight: 118.04 kg

DRUGS (7)
  1. HUMIRA [Suspect]
     Indication: RHEUMATOID ARTHRITIS
     Route: 050
     Dates: start: 20080101
  2. FOLIC ACID [Concomitant]
     Indication: RHEUMATOID ARTHRITIS
     Route: 048
     Dates: start: 20070101
  3. METHOTREXATE [Concomitant]
     Indication: RHEUMATOID ARTHRITIS
     Dosage: 2.5 MCG- 7 PILLS EVERY THURSDAY
     Route: 048
     Dates: start: 20070101
  4. GLIBOMET [Concomitant]
     Indication: TYPE 2 DIABETES MELLITUS
     Dosage: 5MG/500MG- 3 PILLS, 2 IN 1 D
     Route: 048
     Dates: start: 20000101
  5. LISINOPRIL [Concomitant]
     Indication: HYPERTENSION
     Route: 048
     Dates: start: 19900101
  6. LORATADINE [Concomitant]
     Indication: ALLERGIC SINUSITIS
     Route: 048
     Dates: start: 20070101
  7. DIOVAN HCT [Concomitant]
     Indication: HYPERTENSION
     Dosage: 160/12.5 MG, 1 IN 1 D
     Route: 048

REACTIONS (7)
  - ABDOMINAL PAIN UPPER [None]
  - ARTHRALGIA [None]
  - INCORRECT DOSE ADMINISTERED [None]
  - INJECTION SITE ERYTHEMA [None]
  - INJECTION SITE EXTRAVASATION [None]
  - INJECTION SITE HAEMATOMA [None]
  - TOOTHACHE [None]
